FAERS Safety Report 4663123-8 (Version None)
Quarter: 2005Q2

REPORT INFORMATION
  Report Type: 
  Country: None (occurrence: None)
  Receive Date: 20050510
  Receipt Date: 20040331
  Transmission Date: 20051028
  Serious: Yes (Other)
  Sender: FDA-Public Use
  Company Number: PHEH2004US02031

PATIENT
  Age: 20 Year
  Sex: Male

DRUGS (1)
  1. TEGRETOL [Suspect]
     Dosage: ORAL
     Route: 048

REACTIONS (2)
  - HYPERSENSITIVITY [None]
  - LIVER DISORDER [None]
